FAERS Safety Report 4348585-8 (Version None)
Quarter: 2004Q2

REPORT INFORMATION
  Report Type: 
  Country: None (occurrence: None)
  Receive Date: 20040423
  Receipt Date: 20040413
  Transmission Date: 20050107
  Serious: Yes (Hospitalization)
  Sender: FDA-Public Use
  Company Number: HQWYE669617DEC03

PATIENT
  Age: 52 Year
  Sex: Female

DRUGS (3)
  1. RAPAMUNE [Suspect]
     Indication: PROPHYLAXIS AGAINST TRANSPLANT REJECTION
     Dosage: 11 MG 1X PER 1 DAY, ORAL
     Route: 048
     Dates: start: 20030903, end: 20031213
  2. PROGRAF [Concomitant]
  3. PREDNISONE [Concomitant]

REACTIONS (19)
  - ACUTE RESPIRATORY FAILURE [None]
  - ARTHRALGIA [None]
  - BLOOD CREATININE INCREASED [None]
  - CHEST X-RAY ABNORMAL [None]
  - CSF TEST ABNORMAL [None]
  - DEAFNESS [None]
  - DEHYDRATION [None]
  - DRUG LEVEL DECREASED [None]
  - HAEMOGLOBIN DECREASED [None]
  - INCISIONAL DRAINAGE [None]
  - INTERNATIONAL NORMALISED RATIO DECREASED [None]
  - MASTOIDITIS [None]
  - MENINGITIS PNEUMOCOCCAL [None]
  - OTITIS MEDIA [None]
  - PAIN IN EXTREMITY [None]
  - RESPIRATORY TRACT INFECTION [None]
  - RETROPERITONEAL HAEMORRHAGE [None]
  - VENA CAVA THROMBOSIS [None]
  - WHITE BLOOD CELL COUNT INCREASED [None]
